FAERS Safety Report 8610072-6 (Version None)
Quarter: 2012Q3

REPORT INFORMATION
  Report Type: 
  Country: None (occurrence: None)
  Receive Date: 20120822
  Receipt Date: 20120813
  Transmission Date: 20120928
  Serious: Yes (Death, Hospitalization)
  Sender: FDA-Public Use
  Company Number: US-BIOGENIDEC-2012BI027018

PATIENT
  Age: 63 Year
  Sex: Female

DRUGS (1)
  1. TYSABRI [Suspect]
     Indication: MULTIPLE SCLEROSIS
     Route: 042
     Dates: start: 20070207, end: 20120619

REACTIONS (3)
  - DEATH [None]
  - CONVULSION [None]
  - CHRONIC OBSTRUCTIVE PULMONARY DISEASE [None]
